FAERS Safety Report 14143853 (Version 1)
Quarter: 2017Q4

REPORT INFORMATION
  Report Type: Spontaneous
  Country: US (occurrence: US)
  Receive Date: 20171031
  Receipt Date: 20171031
  Transmission Date: 20180321
  Serious: No
  Sender: FDA-Public Use
  Company Number: US-LUPIN PHARMACEUTICALS INC.-2017-04993

PATIENT
  Age: 72 Year
  Sex: Male
  Weight: 79 kg

DRUGS (5)
  1. LISINOPRIL TABLETS USP, 10MG [Suspect]
     Active Substance: LISINOPRIL
     Indication: HYPERTENSION
     Dosage: 10 MG, QD
     Route: 048
     Dates: start: 20160821
  2. LISINOPRIL TABLETS USP, 30MG [Suspect]
     Active Substance: LISINOPRIL
     Indication: HYPERTENSION
     Dosage: 30 MG, QD
     Route: 048
     Dates: start: 20160801, end: 20160821
  3. VALSARTAN TABLETS USP 160MG [Suspect]
     Active Substance: VALSARTAN
     Dosage: 320 MG, QD
     Route: 048
     Dates: start: 201606, end: 201606
  4. LISINOPRIL TABLETS USP, 40MG [Suspect]
     Active Substance: LISINOPRIL
     Indication: HYPERTENSION
     Dosage: 40 MG, QD
     Route: 048
     Dates: start: 20160701, end: 20160731
  5. VALSARTAN TABLETS USP 160MG [Suspect]
     Active Substance: VALSARTAN
     Indication: HYPERTENSION
     Dosage: 160 MG, QD
     Route: 048
     Dates: start: 2016

REACTIONS (5)
  - Headache [Not Recovered/Not Resolved]
  - Impaired driving ability [Recovered/Resolved]
  - Cough [Not Recovered/Not Resolved]
  - Drug ineffective [Unknown]
  - Dizziness [Not Recovered/Not Resolved]

NARRATIVE: CASE EVENT DATE: 201606
